FAERS Safety Report 10521697 (Version 2)
Quarter: 2015Q1

REPORT INFORMATION
  Report Type: Report from Study
  Country: CA (occurrence: CA)
  Receive Date: 20141016
  Receipt Date: 20150123
  Transmission Date: 20150720
  Serious: Yes (Other)
  Sender: FDA-Public Use
  Company Number: CA-ROCHE-1474634

PATIENT
  Age: 59 Year
  Sex: Male

DRUGS (6)
  1. DIPHENHYDRAMINE HCL [Concomitant]
     Active Substance: DIPHENHYDRAMINE HYDROCHLORIDE
     Indication: PREMEDICATION
     Route: 048
     Dates: start: 20130626
  2. ACETAMINOPHEN. [Concomitant]
     Active Substance: ACETAMINOPHEN
     Indication: PREMEDICATION
     Route: 048
     Dates: start: 20130626
  3. RITUXAN [Suspect]
     Active Substance: RITUXIMAB
     Indication: PEMPHIGUS
     Route: 042
     Dates: start: 20130626
  4. RITUXAN [Suspect]
     Active Substance: RITUXIMAB
     Route: 042
     Dates: start: 20150121
  5. METHYLPREDNISOLONE. [Concomitant]
     Active Substance: METHYLPREDNISOLONE
     Indication: PREMEDICATION
     Route: 042
     Dates: start: 20130626
  6. CALTRATE [Concomitant]
     Active Substance: CALCIUM CARBONATE

REACTIONS (4)
  - Psoriasis [Unknown]
  - Infusion related reaction [Unknown]
  - Off label use [Unknown]
  - Pemphigus [Not Recovered/Not Resolved]

NARRATIVE: CASE EVENT DATE: 2014
